FAERS Safety Report 6114130-X (Version None)
Quarter: 2009Q1

REPORT INFORMATION
  Report Type: 
  Country: None (occurrence: None)
  Receive Date: 20090312
  Receipt Date: 20080328
  Transmission Date: 20090719
  Serious: No
  Sender: FDA-Public Use
  Company Number: US-ABBOTT-08P-163-0444455-00

PATIENT
  Age: 15 Year
  Sex: Female

DRUGS (2)
  1. DEPAKOTE [Suspect]
     Indication: AGGRESSION
     Route: 048
     Dates: start: 20071201
  2. RISPERIDONE [Concomitant]
     Indication: AUTISM

REACTIONS (2)
  - ABNORMAL BEHAVIOUR [None]
  - TIC [None]
